FAERS Safety Report 7487917-9 (Version None)
Quarter: 2011Q2

REPORT INFORMATION
  Report Type: 
  Country: None (occurrence: None)
  Receive Date: 20110511
  Receipt Date: 20110426
  Transmission Date: 20111010
  Serious: Yes (Other)
  Sender: FDA-Public Use
  Company Number: AUR-APL-2011-01469

PATIENT
  Age: 67 Year
  Sex: Female

DRUGS (2)
  1. ALENDRONATE SODIUM [Suspect]
  2. CALCIUM WITH VITAMIN D [Concomitant]

REACTIONS (3)
  - FEMUR FRACTURE [None]
  - OSTEOPENIA [None]
  - PATHOLOGICAL FRACTURE [None]
